FAERS Safety Report 9384888 (Version 1)
Quarter: 2013Q3

REPORT INFORMATION
  Report Type: Spontaneous
  Country: US (occurrence: US)
  Receive Date: 20130705
  Receipt Date: 20130705
  Transmission Date: 20140515
  Serious: No
  Sender: FDA-Public Use
  Company Number: US-PFIZER INC-2013198976

PATIENT
  Age: 64 Year
  Sex: Female
  Weight: 76.64 kg

DRUGS (3)
  1. GEODON [Suspect]
     Indication: BIPOLAR DISORDER
     Dosage: 180 MG, DAILY
  2. LYRICA [Concomitant]
     Indication: FIBROMYALGIA
     Dosage: 150 MG, 2X/DAY
  3. EFFEXOR-XR [Concomitant]
     Indication: MOOD SWINGS
     Dosage: 150 MG, DAILY

REACTIONS (2)
  - Dizziness [Unknown]
  - Abnormal behaviour [Unknown]
